FAERS Safety Report 6371306-4 (Version None)
Quarter: 2009Q3

REPORT INFORMATION
  Report Type: 
  Country: None (occurrence: None)
  Receive Date: 20090922
  Receipt Date: 20090922
  Transmission Date: 20100115
  Serious: No
  Sender: FDA-Public Use
  Company Number: None

PATIENT
  Age: 61 Year
  Sex: Male
  Weight: 82.5547 kg

DRUGS (1)
  1. COMPOUNDING HYALURONIDASE - COMPOUNDED 150 M/ML ANAZAO HEALTH [Suspect]
     Indication: LOCAL ANAESTHESIA
     Dosage: NOT DOCUMENTED USUAL DOSE .2-.3 CC PERIBULBAR EYE BLOCK X1
     Dates: start: 20090909

REACTIONS (3)
  - CONJUNCTIVAL OEDEMA [None]
  - EYELID OEDEMA [None]
  - PAROPHTHALMIA [None]
